FAERS Safety Report 13600232 (Version 1)
Quarter: 2017Q2

REPORT INFORMATION
  Report Type: Spontaneous
  Country: US (occurrence: US)
  Receive Date: 20170531
  Receipt Date: 20170531
  Transmission Date: 20170830
  Serious: Yes (Life-Threatening, Other)
  Sender: FDA-Public Use
  Company Number: None

PATIENT
  Age: 19 Year
  Sex: Female
  Weight: 63.5 kg

DRUGS (1)
  1. APLISOL [Suspect]
     Active Substance: TUBERCULIN PURIFIED PROTEIN DERIVATIVE
     Indication: MYCOBACTERIUM TUBERCULOSIS COMPLEX TEST
     Dosage: FREQUENCY - TWO STEP
     Route: 023
     Dates: start: 20170531, end: 20170531

REACTIONS (4)
  - Injection site pain [None]
  - Throat tightness [None]
  - Injection site erythema [None]
  - Injection site induration [None]

NARRATIVE: CASE EVENT DATE: 20170530
